FAERS Safety Report 6560021-X (Version None)
Quarter: 2010Q1

REPORT INFORMATION
  Report Type: 
  Country: None (occurrence: None)
  Receive Date: 20100129
  Receipt Date: 20090917
  Transmission Date: 20100710
  Serious: No
  Sender: FDA-Public Use
  Company Number: US-ABBOTT-09P-163-0598288-00

PATIENT
  Sex: Male

DRUGS (4)
  1. HUMIRA [Suspect]
     Indication: PSORIATIC ARTHROPATHY
     Route: 058
     Dates: start: 20080101, end: 20090901
  2. HUMIRA [Suspect]
     Dosage: UNSURE OF DOSE
     Route: 058
     Dates: start: 20080101, end: 20080101
  3. IGG THERAPY [Concomitant]
     Indication: IMMUNE SYSTEM DISORDER
     Route: 042
  4. METHOTREXATE [Concomitant]
     Indication: PSORIATIC ARTHROPATHY
     Dosage: UNSURE OF DOSE
     Route: 050

REACTIONS (3)
  - HYPOPHAGIA [None]
  - NUCLEAR MAGNETIC RESONANCE IMAGING ABNORMAL [None]
  - PSORIATIC ARTHROPATHY [None]
